FAERS Safety Report 19085281 (Version 2)
Quarter: 2021Q2

REPORT INFORMATION
  Report Type: Spontaneous
  Country: US (occurrence: US)
  Receive Date: 20210401
  Receipt Date: 20210422
  Transmission Date: 20210717
  Serious: Yes (Hospitalization)
  Sender: FDA-Public Use
  Company Number: US-VERTEX PHARMACEUTICALS-2020-008855

PATIENT
  Sex: Female

DRUGS (1)
  1. TRIKAFTA [Suspect]
     Active Substance: ELEXACAFTOR\IVACAFTOR\TEZACAFTOR
     Indication: CYSTIC FIBROSIS
     Dosage: 100 MG ELEXA/ 50 MG TEZA/ 75 MG IVA; 150MG IVA (FREQUENCY UNKNOWN) AT REGULAR DOSE
     Route: 048
     Dates: start: 20200402

REACTIONS (7)
  - Swelling [Not Recovered/Not Resolved]
  - Pre-eclampsia [Unknown]
  - Exposure during pregnancy [Unknown]
  - Pulmonary function test decreased [Recovering/Resolving]
  - Suppressed lactation [Unknown]
  - Failed induction of labour [Recovered/Resolved]
  - Gestational hypertension [Unknown]

NARRATIVE: CASE EVENT DATE: 2020
